FAERS Safety Report 11536963 (Version 4)
Quarter: 2016Q1

REPORT INFORMATION
  Report Type: Report from Study
  Country: JP (occurrence: JP)
  Receive Date: 20150922
  Receipt Date: 20160211
  Transmission Date: 20160525
  Serious: Yes (Death, Other)
  Sender: FDA-Public Use
  Company Number: JP-009507513-1509JPN009750

PATIENT
  Age: 71 Year
  Sex: Male
  Weight: 57 kg

DRUGS (8)
  1. DEXART [Concomitant]
     Active Substance: DEXAMETHASONE SODIUM PHOSPHATE
     Dosage: DAILY DOSAGE UNKNOWN
     Route: 041
     Dates: start: 20130903, end: 20130913
  2. GASTER [Concomitant]
     Active Substance: FAMOTIDINE
     Dosage: DAILY DOSAGE UNKNOWN
     Route: 041
     Dates: start: 20130902, end: 20130908
  3. TEMOZOLOMIDE. [Suspect]
     Active Substance: TEMOZOLOMIDE
     Dosage: 150 MG/M2, QD
     Route: 041
     Dates: start: 20131216, end: 20131220
  4. TEMOZOLOMIDE. [Suspect]
     Active Substance: TEMOZOLOMIDE
     Indication: GLIOBLASTOMA MULTIFORME
     Dosage: 150 MG/M2, QD
     Route: 041
     Dates: start: 20130909, end: 20130913
  5. TEMODAL [Suspect]
     Active Substance: TEMOZOLOMIDE
     Indication: GLIOBLASTOMA MULTIFORME
     Dosage: DAILY DOSAGE UNKNOWN
     Route: 048
     Dates: start: 20130702, end: 20130805
  6. TEMOZOLOMIDE. [Suspect]
     Active Substance: TEMOZOLOMIDE
     Dosage: 150 MG/M2, QD
     Route: 041
     Dates: start: 20131111, end: 20131115
  7. TEMOZOLOMIDE. [Suspect]
     Active Substance: TEMOZOLOMIDE
     Dosage: 150 MG/M2, QD
     Route: 041
     Dates: start: 20131007, end: 20131011
  8. GLYCEOL (FRUCTOSE (+) GLYCERIN (+) SODIUM CHLORIDE) [Concomitant]
     Active Substance: GLYCERIN
     Dosage: DAILY DOSAGE UNKNOWN
     Route: 041
     Dates: start: 20130903, end: 20130913

REACTIONS (17)
  - Blood potassium decreased [Recovered/Resolved]
  - Protein total decreased [Not Recovered/Not Resolved]
  - Blood lactate dehydrogenase increased [Recovering/Resolving]
  - Blood urine present [Unknown]
  - Blood chloride decreased [Recovered/Resolved]
  - Red blood cell count decreased [Recovered/Resolved]
  - Neutrophil count increased [Recovered/Resolved]
  - Pneumonia staphylococcal [Fatal]
  - Blood albumin decreased [Recovered/Resolved]
  - Blood sodium increased [Not Recovered/Not Resolved]
  - Blood albumin decreased [Not Recovered/Not Resolved]
  - White blood cell count increased [Not Recovered/Not Resolved]
  - C-reactive protein increased [Not Recovered/Not Resolved]
  - Haemoglobin decreased [Recovered/Resolved]
  - Platelet count decreased [Not Recovered/Not Resolved]
  - Haematocrit decreased [Recovered/Resolved]
  - Blood albumin decreased [Recovered/Resolved]

NARRATIVE: CASE EVENT DATE: 20130909
